FAERS Safety Report 13884248 (Version 1)
Quarter: 2017Q3

REPORT INFORMATION
  Report Type: Spontaneous
  Country: US (occurrence: US)
  Receive Date: 20170821
  Receipt Date: 20170821
  Transmission Date: 20171127
  Serious: Yes (Other)
  Sender: FDA-Public Use
  Company Number: US-TEVA-752475USA

PATIENT
  Age: 73 Year
  Sex: Male

DRUGS (8)
  1. NOVOLOG [Concomitant]
     Active Substance: INSULIN ASPART
  2. PRAVASTATIN. [Concomitant]
     Active Substance: PRAVASTATIN
  3. ASPIRIN. [Concomitant]
     Active Substance: ASPIRIN
  4. LISINOPRIL. [Concomitant]
     Active Substance: LISINOPRIL
  5. CALCIUM [Concomitant]
     Active Substance: CALCIUM
  6. OXALIPLATIN INJECTION 50MG/10 MLAND100MG/20ML [Suspect]
     Active Substance: OXALIPLATIN
     Route: 065
  7. OXALIPLATIN INJECTION 50MG/10 MLAND100MG/20ML [Suspect]
     Active Substance: OXALIPLATIN
     Route: 065
  8. METOPROLOL. [Concomitant]
     Active Substance: METOPROLOL

REACTIONS (3)
  - Thrombocytopenia [Unknown]
  - Neutropenia [Recovered/Resolved]
  - Anaemia [Unknown]

NARRATIVE: CASE EVENT DATE: 20170206
